FAERS Safety Report 20650247 (Version 3)
Quarter: 2022Q2

REPORT INFORMATION
  Report Type: Spontaneous
  Country: JP (occurrence: JP)
  Receive Date: 20220329
  Receipt Date: 20220527
  Transmission Date: 20220721
  Serious: Yes (Other)
  Sender: FDA-Public Use
  Company Number: JP-OTSUKA-2021_044675

PATIENT
  Age: 23 Year
  Sex: Male

DRUGS (13)
  1. REXULTI [Suspect]
     Active Substance: BREXPIPRAZOLE
     Indication: Schizophrenia
     Dosage: 1 MG, QD
     Route: 048
     Dates: start: 20200213, end: 20210628
  2. REXULTI [Suspect]
     Active Substance: BREXPIPRAZOLE
     Dosage: 1 MG, QD
     Route: 048
     Dates: start: 20181127, end: 20181217
  3. REXULTI [Suspect]
     Active Substance: BREXPIPRAZOLE
     Dosage: 0.5 MG, QD
     Route: 048
     Dates: start: 20210629, end: 20210825
  4. REXULTI [Suspect]
     Active Substance: BREXPIPRAZOLE
     Dosage: 1 MG, QD
     Route: 048
     Dates: start: 20211202, end: 20211227
  5. REXULTI [Suspect]
     Active Substance: BREXPIPRAZOLE
     Indication: Schizophrenia
     Dosage: 2 MG, QD
     Route: 048
     Dates: start: 20181218, end: 20200212
  6. REXULTI [Suspect]
     Active Substance: BREXPIPRAZOLE
     Indication: Schizophrenia
     Dosage: 0.5 MG, QD
     Route: 048
     Dates: start: 20211228
  7. ARIPIPRAZOLE [Suspect]
     Active Substance: ARIPIPRAZOLE
     Indication: Schizophrenia
     Dosage: 3 MG/DAY, UNK
     Route: 048
     Dates: start: 20210826, end: 20210927
  8. ARIPIPRAZOLE [Suspect]
     Active Substance: ARIPIPRAZOLE
     Dosage: 1.5 MG/DAY, UNK
     Route: 048
     Dates: start: 20210928, end: 20211010
  9. LATUDA [Suspect]
     Active Substance: LURASIDONE HYDROCHLORIDE
     Indication: Schizophrenia
     Dosage: 20 MG, QD
     Route: 048
     Dates: start: 20211014, end: 20211201
  10. RIVOTRIL [Concomitant]
     Active Substance: CLONAZEPAM
     Indication: Product used for unknown indication
     Dosage: 1 MG, QD
     Route: 048
     Dates: start: 20211014, end: 20211103
  11. RIVOTRIL [Concomitant]
     Active Substance: CLONAZEPAM
     Dosage: 2 MG, QD
     Route: 048
     Dates: start: 20211104
  12. ETHYL LOFLAZEPATE [Concomitant]
     Active Substance: ETHYL LOFLAZEPATE
     Indication: Product used for unknown indication
     Dosage: 1 MG, QD
     Route: 048
     Dates: start: 20211202, end: 20220420
  13. ETHYL LOFLAZEPATE [Concomitant]
     Active Substance: ETHYL LOFLAZEPATE
     Dosage: 2 MG, QD
     Route: 048
     Dates: start: 20220421

REACTIONS (5)
  - Meige^s syndrome [Not Recovered/Not Resolved]
  - Condition aggravated [Unknown]
  - Musculoskeletal stiffness [Unknown]
  - Restlessness [Unknown]
  - Weight increased [Unknown]

NARRATIVE: CASE EVENT DATE: 20200213
